FAERS Safety Report 23952557 (Version 1)
Quarter: 2024Q2

REPORT INFORMATION
  Report Type: Spontaneous
  Country: US (occurrence: None)
  Receive Date: 20240607
  Receipt Date: 20240607
  Transmission Date: 20240715
  Serious: Yes (unspecified)
  Sender: FDA-Public Use
  Company Number: None

PATIENT
  Age: 3 Year
  Sex: Male
  Weight: 14.3 kg

DRUGS (1)
  1. LIDOCAINE HYDROCHLORIDE [Suspect]
     Active Substance: LIDOCAINE HYDROCHLORIDE
     Dosage: 5 ML ONCE INTRADERMAL
     Route: 023

REACTIONS (4)
  - Injection site reaction [None]
  - Pallor [None]
  - Administration site streaking [None]
  - Injection site discolouration [None]

NARRATIVE: CASE EVENT DATE: 20240419
